FAERS Safety Report 24339410 (Version 1)
Quarter: 2024Q3

REPORT INFORMATION
  Report Type: Report from Study
  Country: IN (occurrence: IN)
  Receive Date: 20240919
  Receipt Date: 20240919
  Transmission Date: 20241016
  Serious: Yes (Death, Other)
  Sender: ROCHE
  Company Number: IN-002147023-NVSC2024IN183151

PATIENT
  Sex: Male

DRUGS (2)
  1. RANIBIZUMAB [Suspect]
     Active Substance: RANIBIZUMAB
     Indication: Diabetic retinopathy
     Dosage: 0.5 MG, QMO
     Route: 050
     Dates: start: 20240518
  2. RANIBIZUMAB [Suspect]
     Active Substance: RANIBIZUMAB
     Indication: Macular oedema

REACTIONS (6)
  - Death [Fatal]
  - Cataract cortical [Unknown]
  - Cataract nuclear [Unknown]
  - Retinal exudates [Unknown]
  - Cataract subcapsular [Unknown]
  - Mydriasis [Unknown]
